FAERS Safety Report 7491444-2 (Version None)
Quarter: 2011Q2

REPORT INFORMATION
  Report Type: 
  Country: None (occurrence: None)
  Receive Date: 20110519
  Receipt Date: 20110511
  Transmission Date: 20111010
  Serious: Yes (Hospitalization, Disabling, Other)
  Sender: FDA-Public Use
  Company Number: PHHY2010US33888

PATIENT
  Sex: Female

DRUGS (5)
  1. AMBIEN [Concomitant]
  2. EXJADE [Suspect]
     Indication: MYELODYSPLASTIC SYNDROME
     Dosage: 1500 MG DAILY
     Route: 048
     Dates: start: 20080601, end: 20091001
  3. EXJADE [Suspect]
     Indication: IRON OVERLOAD
     Dosage: 1500 MG DAILY
     Route: 048
     Dates: start: 20100101
  4. PERCOCET [Concomitant]
  5. EXJADE [Suspect]
     Dosage: 1000 MG, QD
     Route: 048

REACTIONS (6)
  - DEAFNESS NEUROSENSORY [None]
  - HEARING IMPAIRED [None]
  - WEIGHT DECREASED [None]
  - FALL [None]
  - TINNITUS [None]
  - DIARRHOEA [None]
